FAERS Safety Report 9788519 (Version 3)
Quarter: 2014Q1

REPORT INFORMATION
  Report Type: Spontaneous
  Country: JP (occurrence: JP)
  Receive Date: 20131230
  Receipt Date: 20140204
  Transmission Date: 20141002
  Serious: Yes (Other)
  Sender: FDA-Public Use
  Company Number: PHHY2013JP152408

PATIENT
  Age: 73 Year
  Sex: Male

DRUGS (2)
  1. FAMVIR [Suspect]
     Indication: HERPES ZOSTER
     Dosage: 500 MG, TID
     Route: 048
     Dates: start: 20120907, end: 20120908
  2. CALONAL [Concomitant]
     Indication: ANALGESIC THERAPY
     Dosage: 400 MG, TID
     Route: 048
     Dates: start: 20120907, end: 20120908

REACTIONS (1)
  - Convulsion [Recovered/Resolved]
